FAERS Safety Report 7717045-6 (Version None)
Quarter: 2011Q3

REPORT INFORMATION
  Report Type: 
  Country: None (occurrence: None)
  Receive Date: 20110829
  Receipt Date: 20110822
  Transmission Date: 20111222
  Serious: Yes (Other)
  Sender: FDA-Public Use
  Company Number: PL-AMGEN-POLSP2011043599

PATIENT
  Age: 24 Year
  Sex: Female
  Weight: 81 kg

DRUGS (3)
  1. ENBREL [Suspect]
     Indication: RHEUMATOID ARTHRITIS
     Dosage: 50 MG, WEEKLY
     Route: 058
     Dates: start: 20110622
  2. INSULIN ACTRAPID                   /00646001/ [Concomitant]
     Dosage: UNK
     Route: 058
     Dates: start: 19970101
  3. METHOTREXAT                        /00113801/ [Concomitant]
     Dosage: UNK
     Route: 048
     Dates: start: 20100401

REACTIONS (3)
  - INJECTION SITE PAIN [None]
  - TUBULOINTERSTITIAL NEPHRITIS [None]
  - INJECTION SITE JOINT WARMTH [None]
